FAERS Safety Report 21211086 (Version 1)
Quarter: 2022Q3

REPORT INFORMATION
  Report Type: Spontaneous
  Country: US (occurrence: US)
  Receive Date: 20220815
  Receipt Date: 20220815
  Transmission Date: 20221027
  Serious: No
  Sender: FDA-Public Use
  Company Number: US-BRISTOL-MYERS SQUIBB COMPANY-2022-089380

PATIENT
  Sex: Male

DRUGS (2)
  1. REVLIMID [Suspect]
     Active Substance: LENALIDOMIDE
     Indication: Plasma cell myeloma
     Dosage: AT FIRST ON - DAILY 14 DAYS ON AND 7 DAYS OFF??LATER CHANGED TO - 3 WEEKS ON AND 1 WEEK OFF
     Route: 048
     Dates: start: 202107, end: 20220731
  2. REVLIMID [Suspect]
     Active Substance: LENALIDOMIDE
     Dosage: 3 WEEKS ON AND 1 WEEK OFF
     Route: 048

REACTIONS (2)
  - Renal disorder [Unknown]
  - Product dose omission issue [Unknown]
